FAERS Safety Report 4599101-7 (Version None)
Quarter: 2005Q1

REPORT INFORMATION
  Report Type: 
  Country: None (occurrence: None)
  Receive Date: 20050302
  Receipt Date: 20050221
  Transmission Date: 20050727
  Serious: Yes (Hospitalization, Other)
  Sender: FDA-Public Use
  Company Number: 2004-10-1215

PATIENT
  Age: 57 Year
  Sex: Female
  Weight: 56.246 kg

DRUGS (4)
  1. PEG-INTERFERON ALFA-2B [Suspect]
     Indication: HEPATITIS C
     Dosage: SUBCUTANEOUS
     Route: 058
     Dates: start: 20031208, end: 20041107
  2. RIBAVIRIN [Suspect]
     Indication: HEPATITIS C
     Dosage: ORAL
     Route: 048
     Dates: start: 20031208, end: 20041107
  3. TYLENOL (CAPLET) [Concomitant]
  4. PAXIL [Concomitant]

REACTIONS (27)
  - ALOPECIA [None]
  - AMNESIA [None]
  - ANXIETY [None]
  - BLOOD URINE [None]
  - CHEST PAIN [None]
  - CONFUSIONAL STATE [None]
  - COUGH [None]
  - DEPRESSION [None]
  - DISTURBANCE IN ATTENTION [None]
  - DRY SKIN [None]
  - DYSURIA [None]
  - FATIGUE [None]
  - HALLUCINATION [None]
  - HEADACHE [None]
  - HEPATOMEGALY [None]
  - INSOMNIA [None]
  - LOSS OF CONSCIOUSNESS [None]
  - MASS [None]
  - NAUSEA [None]
  - NIGHTMARE [None]
  - PHARYNGOLARYNGEAL PAIN [None]
  - PRURITUS [None]
  - PYREXIA [None]
  - RASH PAPULAR [None]
  - SKIN HAEMORRHAGE [None]
  - SPLEEN PALPABLE [None]
  - THIRST [None]
